FAERS Safety Report 4873366-6 (Version None)
Quarter: 2006Q1

REPORT INFORMATION
  Report Type: 
  Country: None (occurrence: None)
  Receive Date: 20060104
  Receipt Date: 20051228
  Transmission Date: 20060701
  Serious: Yes (Death)
  Sender: FDA-Public Use
  Company Number: 2005-136321-NL

PATIENT
  Age: 64 Year
  Sex: Male

DRUGS (15)
  1. DANAPROID SODIUM [Suspect]
     Indication: DISSEMINATED INTRAVASCULAR COAGULATION
     Dosage: 1250 ANTI_XA BID INTRAVENOUS DRIP
     Route: 041
     Dates: start: 20030922, end: 20031007
  2. TRANEXAMIC ACID [Concomitant]
  3. CARBAZOCHROME SODIUM SULFONATE [Concomitant]
  4. MENATETRENONE [Concomitant]
  5. CEFMETAZOLE SODIUM [Concomitant]
  6. OMEPRAZOLE [Concomitant]
  7. PENTAZOCINE LACTATE [Concomitant]
  8. HYDROXYZINE HYDROCHLORIDE [Concomitant]
  9. DEXAMETHASONE SODIUM PHOSPHATE [Concomitant]
  10. MORPHINE [Concomitant]
  11. MORPHINE [Concomitant]
  12. SULPERAZON [Concomitant]
  13. HYDROXYCARBAMIDE [Concomitant]
  14. IMIPENEM [Concomitant]
  15. FLUCONAZOLE [Concomitant]

REACTIONS (13)
  - ALANINE AMINOTRANSFERASE INCREASED [None]
  - ANAEMIA [None]
  - ASPARTATE AMINOTRANSFERASE INCREASED [None]
  - BLOOD BILIRUBIN INCREASED [None]
  - BLOOD LACTATE DEHYDROGENASE INCREASED [None]
  - BLOOD UREA INCREASED [None]
  - CEREBRAL HAEMORRHAGE [None]
  - CONVULSION [None]
  - GAMMA-GLUTAMYLTRANSFERASE INCREASED [None]
  - LIVER DISORDER [None]
  - LOSS OF CONSCIOUSNESS [None]
  - SEPSIS [None]
  - WHITE BLOOD CELL COUNT INCREASED [None]
